FAERS Safety Report 20593155 (Version 1)
Quarter: 2022Q1

REPORT INFORMATION
  Report Type: Spontaneous
  Country: US (occurrence: None)
  Receive Date: 20220315
  Receipt Date: 20220315
  Transmission Date: 20220424
  Serious: No
  Sender: FDA-Public Use
  Company Number: US-ROCHE-2831675

PATIENT
  Age: 67 Year
  Sex: Female

DRUGS (1)
  1. XOLAIR [Suspect]
     Active Substance: OMALIZUMAB
     Indication: Pemphigoid
     Dosage: 300MG EVERY 4 WEEKS, INCREASED TO 375MG EVERY 4 WEEKS
     Route: 058

REACTIONS (2)
  - Arthralgia [Unknown]
  - Off label use [Unknown]
